FAERS Safety Report 13544529 (Version 1)
Quarter: 2017Q2

REPORT INFORMATION
  Report Type: Spontaneous
  Country: US (occurrence: US)
  Receive Date: 20170512
  Receipt Date: 20170512
  Transmission Date: 20170830
  Serious: Yes (Hospitalization)
  Sender: FDA-Public Use
  Company Number: None

PATIENT
  Age: 27 Year
  Sex: Female

DRUGS (1)
  1. PULMOZYME [Suspect]
     Active Substance: DORNASE ALFA
     Indication: ASTHMA
     Dosage: ROUTE - INHALED VIA NEBULIZER
     Route: 055
     Dates: start: 20170502

REACTIONS (1)
  - Sinus operation [None]

NARRATIVE: CASE EVENT DATE: 20170510
